FAERS Safety Report 18122884 (Version 2)
Quarter: 2020Q4

REPORT INFORMATION
  Report Type: Spontaneous
  Country: JP (occurrence: JP)
  Receive Date: 20200807
  Receipt Date: 20201028
  Transmission Date: 20210113
  Serious: Yes (Death, Hospitalization, Disabling, Other)
  Sender: FDA-Public Use
  Company Number: NVSJ2020JP007694

PATIENT
  Age: 74 Year
  Sex: Female

DRUGS (3)
  1. VOTRIENT [Suspect]
     Active Substance: PAZOPANIB HYDROCHLORIDE
     Indication: METASTASES TO LUNG
     Dosage: 600 MG
     Route: 048
     Dates: start: 201704, end: 201901
  2. VOTRIENT [Suspect]
     Active Substance: PAZOPANIB HYDROCHLORIDE
     Indication: RENAL CANCER
     Dosage: 400 MG
     Route: 048
  3. VOTRIENT [Suspect]
     Active Substance: PAZOPANIB HYDROCHLORIDE
     Dosage: 600 MG
     Route: 048
     Dates: start: 201903, end: 201904

REACTIONS (8)
  - Generalised oedema [Unknown]
  - Pulmonary hypertension [Unknown]
  - Oedema peripheral [Unknown]
  - Dermatitis [Unknown]
  - Post procedural inflammation [Unknown]
  - Respiratory failure [Fatal]
  - Skin ulcer [Not Recovered/Not Resolved]
  - Wound secretion [Unknown]

NARRATIVE: CASE EVENT DATE: 2019
